FAERS Safety Report 9313395 (Version 2)
Quarter: 2013Q2

REPORT INFORMATION
  Report Type: Spontaneous
  Country: AR (occurrence: AR)
  Receive Date: 20130528
  Receipt Date: 20130610
  Transmission Date: 20140414
  Serious: Yes (Hospitalization)
  Sender: FDA-Public Use
  Company Number: AR-ELI_LILLY_AND_COMPANY-AR201305005212

PATIENT
  Sex: Female

DRUGS (2)
  1. FORTEO [Suspect]
     Indication: HYPOPARATHYROIDISM SECONDARY
     Dosage: 20 UG, BID
  2. FORTEO [Suspect]
     Dosage: 20 UG, QD

REACTIONS (11)
  - Blood calcium decreased [Recovered/Resolved]
  - Asthenia [Recovered/Resolved]
  - Tachycardia [Unknown]
  - Vomiting [Unknown]
  - Drug specific antibody present [Unknown]
  - Hypotension [Unknown]
  - Polyuria [Unknown]
  - Back pain [Unknown]
  - Rash [Unknown]
  - Nausea [Unknown]
  - Drug ineffective [Unknown]
